FAERS Safety Report 5958811-7 (Version None)
Quarter: 2008Q4

REPORT INFORMATION
  Report Type: 
  Country: None (occurrence: None)
  Receive Date: 20081110
  Receipt Date: 20080731
  Transmission Date: 20090506
  Serious: No
  Sender: FDA-Public Use
  Company Number: 2008US002045

PATIENT
  Age: 80 Year
  Sex: Male

DRUGS (9)
  1. LEXISCAN [Suspect]
     Indication: CARDIAC IMAGING PROCEDURE
     Dosage: 0.4 MG
     Dates: start: 20080717
  2. LIPITOR [Concomitant]
  3. CALCIUM (ASCORBIC ACID) [Concomitant]
  4. ALTACE [Concomitant]
  5. HYTRIN [Concomitant]
  6. ATIVAN [Concomitant]
  7. VOLTAREN [Concomitant]
  8. ASPIRIN (CITRIC ACID) [Concomitant]
  9. MULTIVITAMIN [Concomitant]

REACTIONS (1)
  - BRADYCARDIA [None]
